FAERS Safety Report 8917738 (Version 2)
Quarter: 2012Q4

REPORT INFORMATION
  Report Type: 
  Country: US (occurrence: US)
  Receive Date: 20121120
  Receipt Date: 20121203
  Transmission Date: 20130627
  Serious: No
  Sender: FDA-Public Use
  Company Number: US-009507513-1211USA008096

PATIENT
  Sex: Female
  Weight: 72.56 kg

DRUGS (1)
  1. CLARITIN-D 24 HOUR [Suspect]
     Indication: NASAL CONGESTION
     Dosage: UNK, Unknown
     Route: 048
     Dates: start: 201209

REACTIONS (1)
  - Insomnia [Recovered/Resolved]
